FAERS Safety Report 4436014-5 (Version None)
Quarter: 2004Q3

REPORT INFORMATION
  Report Type: 
  Country: None (occurrence: None)
  Receive Date: 20040826
  Receipt Date: 20040810
  Transmission Date: 20050211
  Serious: Yes (Hospitalization)
  Sender: FDA-Public Use
  Company Number: 2004-BP-06261BP

PATIENT
  Age: 66 Year
  Sex: Female
  Weight: 53.1 kg

DRUGS (11)
  1. SPIRIVA [Suspect]
     Indication: CHRONIC OBSTRUCTIVE AIRWAYS DISEASE
     Dosage: 18 MCG (18 MCG, 18 MCG ONCE DAILY), IH
     Route: 055
     Dates: start: 20040707, end: 20040718
  2. ACCOLATE [Concomitant]
  3. XOPENEX [Concomitant]
  4. BUSPAR [Concomitant]
  5. VERELAN [Concomitant]
  6. UNIVASE [Concomitant]
  7. THEO-DUR [Concomitant]
  8. FOLIC ACID [Concomitant]
  9. AZULFEDINE [Concomitant]
  10. LASIX [Concomitant]
  11. K-DUR 10 [Concomitant]

REACTIONS (2)
  - DRUG LEVEL INCREASED [None]
  - TACHYCARDIA [None]
